FAERS Safety Report 10017254 (Version 1)
Quarter: 2014Q1

REPORT INFORMATION
  Report Type: Spontaneous
  Country: US (occurrence: US)
  Receive Date: 20140318
  Receipt Date: 20140318
  Transmission Date: 20141002
  Serious: No
  Sender: FDA-Public Use
  Company Number: US-SHIRE-US201400545

PATIENT
  Sex: 0

DRUGS (2)
  1. VYVANSE [Suspect]
     Indication: ATTENTION DEFICIT/HYPERACTIVITY DISORDER
     Dosage: 20 MG, UNKNOWN(1QAM)
     Route: 048
     Dates: start: 20140312
  2. VYVANSE [Suspect]
     Indication: DEPRESSION

REACTIONS (2)
  - Dry mouth [Unknown]
  - Headache [Unknown]
